FAERS Safety Report 18408225 (Version 1)
Quarter: 2020Q4

REPORT INFORMATION
  Report Type: Spontaneous
  Country: US (occurrence: US)
  Receive Date: 20201021
  Receipt Date: 20201021
  Transmission Date: 20210114
  Serious: Yes (Hospitalization, Other)
  Sender: FDA-Public Use
  Company Number: US-ACCORD-205476

PATIENT
  Age: 74 Year
  Sex: Male

DRUGS (2)
  1. NOREPINEPHRINE. [Concomitant]
     Active Substance: NOREPINEPHRINE
     Indication: SUPPORTIVE CARE
     Dosage: INOTROPIC SUPPORT
     Route: 041
  2. HYDROXYCHLOROQUINE [Suspect]
     Active Substance: HYDROXYCHLOROQUINE
     Indication: COVID-19

REACTIONS (3)
  - Electrocardiogram QT prolonged [Unknown]
  - Off label use [Unknown]
  - Ventricular tachycardia [Unknown]
